FAERS Safety Report 9460697 (Version 1)
Quarter: 2013Q3

REPORT INFORMATION
  Report Type: Spontaneous
  Country: AU (occurrence: None)
  Receive Date: 20130813
  Receipt Date: 20130813
  Transmission Date: 20140515
  Serious: Yes (Other)
  Sender: FDA-Public Use
  Company Number: 1832900

PATIENT
  Sex: Female

DRUGS (3)
  1. CARBOPLATIN [Suspect]
     Indication: NON-SMALL CELL LUNG CANCER METASTATIC
  2. PACLITAXEL [Suspect]
     Indication: NON-SMALL CELL LUNG CANCER METASTATIC
     Dosage: 3 CYCLES
  3. PEMETREXED [Suspect]
     Indication: NON-SMALL CELL LUNG CANCER METASTATIC

REACTIONS (4)
  - Renal impairment [None]
  - Neuropathy peripheral [None]
  - Urinary tract infection [None]
  - Non-small cell lung cancer [None]
